FAERS Safety Report 10483151 (Version 1)
Quarter: 2014Q3

REPORT INFORMATION
  Report Type: Spontaneous
  Country: GB (occurrence: GB)
  Receive Date: 20140930
  Receipt Date: 20140930
  Transmission Date: 20150326
  Serious: Yes (Other)
  Sender: FDA-Public Use
  Company Number: GB-AUROBINDO-AUR-APL-2014-10227

PATIENT
  Age: 39 Year
  Sex: Female
  Weight: 85 kg

DRUGS (6)
  1. VENLAFAXINE [Concomitant]
     Active Substance: VENLAFAXINE HYDROCHLORIDE
     Indication: DEPRESSION
     Dosage: 200 MG, UNK
     Route: 048
     Dates: start: 2014
  2. TOPIRAMATE 25MG GLENMARK PHARMACEUTICALS [Suspect]
     Active Substance: TOPIRAMATE
     Indication: ABNORMAL WEIGHT GAIN
     Dosage: 25 MG, UNK
     Route: 048
     Dates: start: 20140718, end: 20140804
  3. TOPIRAMATE 25MG GLENMARK PHARMACEUTICALS [Suspect]
     Active Substance: TOPIRAMATE
     Indication: DEPRESSION
  4. THYROXINE [Concomitant]
     Active Substance: LEVOTHYROXINE
     Indication: HYPOTHYROIDISM
     Dosage: UNK
     Route: 065
  5. METFORMIN [Concomitant]
     Active Substance: METFORMIN HYDROCHLORIDE
     Indication: PRODUCT USED FOR UNKNOWN INDICATION
     Dosage: 1 G, UNK
     Route: 048
  6. ZOPICLONE [Concomitant]
     Active Substance: ZOPICLONE
     Indication: INSOMNIA
     Dosage: 1 G, UNK
     Route: 048

REACTIONS (7)
  - Inappropriate affect [Recovered/Resolved]
  - Agitation [Recovered/Resolved]
  - Paranoia [Recovered/Resolved]
  - Psychotic disorder [Recovered/Resolved]
  - Hallucination, visual [Recovered/Resolved]
  - Affect lability [Recovered/Resolved]
  - Panic disorder [Recovered/Resolved]

NARRATIVE: CASE EVENT DATE: 20140801
